FAERS Safety Report 10747755 (Version 4)
Quarter: 2015Q4

REPORT INFORMATION
  Report Type: Spontaneous
  Country: US (occurrence: US)
  Receive Date: 20150129
  Receipt Date: 20151127
  Transmission Date: 20160304
  Serious: No
  Sender: FDA-Public Use
  Company Number: US-PFIZER INC-2014286138

PATIENT
  Age: 70 Year
  Sex: Male
  Weight: 79.37 kg

DRUGS (3)
  1. SUTENT [Suspect]
     Active Substance: SUNITINIB MALATE
     Indication: RENAL CELL CARCINOMA
     Dosage: 50 MG, UNK
  2. SUTENT [Suspect]
     Active Substance: SUNITINIB MALATE
     Dosage: 25 MG, CYCLIC (FOR TWO WEEKS THEN OFF AND THEN ON ANOTHER CYCLE FOR ANOTHER TWO WEEKS)
  3. SUTENT [Suspect]
     Active Substance: SUNITINIB MALATE
     Dosage: 37.5 UNK, UNK

REACTIONS (3)
  - Dyspepsia [Recovering/Resolving]
  - Nausea [Unknown]
  - Hand-foot-and-mouth disease [Recovering/Resolving]

NARRATIVE: CASE EVENT DATE: 2015
